FAERS Safety Report 24162088 (Version 1)
Quarter: 2024Q3

REPORT INFORMATION
  Report Type: Spontaneous
  Country: FR (occurrence: FR)
  Receive Date: 20240801
  Receipt Date: 20240801
  Transmission Date: 20241017
  Serious: Yes (Hospitalization)
  Sender: AUROBINDO
  Company Number: FR-AFSSAPS-MA2024000988

PATIENT
  Age: 59 Year
  Sex: Female

DRUGS (3)
  1. ONDANSETRON [Suspect]
     Active Substance: ONDANSETRON
     Indication: Anaesthetic premedication
     Dosage: 1 DOSAGE FORM, ONCE A DAY (8 MG)
     Route: 048
     Dates: start: 20240514, end: 20240514
  2. ACETAMINOPHEN [Suspect]
     Active Substance: ACETAMINOPHEN
     Indication: Anaesthetic premedication
     Dosage: 1 DOSAGE FORM, ONCE A DAY (1000MG)
     Route: 048
     Dates: start: 20240514, end: 20240514
  3. KETOPROFEN [Suspect]
     Active Substance: KETOPROFEN
     Indication: Anaesthetic premedication
     Dosage: 1 DOSAGE FORM, ONCE A DAY (100MG)
     Route: 048
     Dates: start: 20240514, end: 20240514

REACTIONS (1)
  - Hypersensitivity [Recovered/Resolved]

NARRATIVE: CASE EVENT DATE: 20240514
